FAERS Safety Report 6285558-2 (Version None)
Quarter: 2009Q3

REPORT INFORMATION
  Report Type: 
  Country: None (occurrence: None)
  Receive Date: 20090716
  Receipt Date: 20090127
  Transmission Date: 20100115
  Serious: Yes (Hospitalization)
  Sender: FDA-Public Use
  Company Number: 2008BI025281

PATIENT
  Age: 67 Year
  Sex: Female
  Weight: 57.6068 kg

DRUGS (3)
  1. AVONEX [Suspect]
     Indication: MULTIPLE SCLEROSIS
     Dosage: IM
     Route: 030
     Dates: start: 20060101
  2. MOTRIN [Concomitant]
  3. PREV MEDS [Concomitant]

REACTIONS (3)
  - DRUG HYPERSENSITIVITY [None]
  - MULTIPLE SCLEROSIS RELAPSE [None]
  - TONGUE DISORDER [None]
